FAERS Safety Report 23194754 (Version 2)
Quarter: 2024Q2

REPORT INFORMATION
  Report Type: Report from Study
  Country: US (occurrence: US)
  Receive Date: 20231117
  Receipt Date: 20240512
  Transmission Date: 20240716
  Serious: Yes (Hospitalization, Other)
  Sender: FDA-Public Use
  Company Number: US-ALXN-A202302666AA

PATIENT
  Sex: Male

DRUGS (1)
  1. SOLIRIS [Suspect]
     Active Substance: ECULIZUMAB
     Indication: Atypical haemolytic uraemic syndrome
     Dosage: UNK
     Route: 065

REACTIONS (9)
  - Osteomyelitis [Unknown]
  - Haemoglobin decreased [Recovering/Resolving]
  - Pleural effusion [Not Recovered/Not Resolved]
  - Pulmonary mass [Unknown]
  - Communication disorder [Recovered/Resolved]
  - Fall [Unknown]
  - Pyrexia [Recovered/Resolved]
  - Chills [Recovered/Resolved]
  - Headache [Unknown]
